FAERS Safety Report 4602515-X (Version None)
Quarter: 2005Q1

REPORT INFORMATION
  Report Type: 
  Country: None (occurrence: None)
  Receive Date: 20050307
  Receipt Date: 20050222
  Transmission Date: 20050727
  Serious: Yes (Hospitalization, Other)
  Sender: FDA-Public Use
  Company Number: 2005036751

PATIENT
  Sex: Male
  Weight: 100.6985 kg

DRUGS (7)
  1. LITHIUM CARBONATE [Suspect]
     Indication: ILL-DEFINED DISORDER
     Dates: end: 20020501
  2. CARBAMAZEPINE [Suspect]
     Indication: ILL-DEFINED DISORDER
     Dates: start: 20020401
  3. TERBINAFINE HCL [Concomitant]
  4. ATORVASTATIN CALCIUM [Concomitant]
  5. PARACETAMOL [Concomitant]
  6. ZOLPIDEM TARTRATE [Concomitant]
  7. ROFECOXIB [Concomitant]

REACTIONS (8)
  - DRUG INTERACTION [None]
  - DRUG LEVEL ABOVE THERAPEUTIC [None]
  - DYSARTHRIA [None]
  - FACIAL BONES FRACTURE [None]
  - FALL [None]
  - GAIT DISTURBANCE [None]
  - LACERATION [None]
  - QUADRIPLEGIA [None]
